FAERS Safety Report 8491210-5 (Version None)
Quarter: 2012Q3

REPORT INFORMATION
  Report Type: 
  Country: None (occurrence: None)
  Receive Date: 20120706
  Receipt Date: 20120627
  Transmission Date: 20120928
  Serious: Yes (Hospitalization, Other)
  Sender: FDA-Public Use
  Company Number: US-UCBSA-059918

PATIENT
  Sex: Male

DRUGS (8)
  1. SENOKOT [Concomitant]
     Dosage: 1 TAB BID
  2. VIMPAT [Suspect]
     Indication: CONVULSION
     Dosage: DOSE STRENGTH 150 MG; 50MG 3 TAB BID
  3. KEPPRA [Concomitant]
     Dates: start: 20120521
  4. CLONAZEPAM [Concomitant]
     Indication: PARANOIA
     Dosage: 0.5MG 1 TAB DAILY
     Dates: start: 20120501
  5. SEROQUEL [Concomitant]
     Indication: PARANOIA
     Dosage: AT BEDTIME
     Dates: start: 20120501
  6. PROVENTIL-HFA [Concomitant]
     Dosage: 2 PUFFS EVERY 4 HOURS
  7. FLOMAX [Concomitant]
  8. BACTRIM [Concomitant]
     Dosage: ON MONDAY, WEDNESDAY AND FRIDAY
     Dates: start: 20120501

REACTIONS (10)
  - PARANOIA [None]
  - BRAIN OPERATION [None]
  - CONVULSION [None]
  - RESPIRATORY FAILURE [None]
  - PSYCHOTIC DISORDER [None]
  - DELIRIUM [None]
  - ENCEPHALOPATHY [None]
  - PYREXIA [None]
  - SEDATION [None]
  - URINARY RETENTION [None]
